FAERS Safety Report 21585003 (Version 1)
Quarter: 2022Q4

REPORT INFORMATION
  Report Type: Spontaneous
  Country: RO (occurrence: RO)
  Receive Date: 20221111
  Receipt Date: 20221111
  Transmission Date: 20230113
  Serious: Yes (Life-Threatening)
  Sender: FDA-Public Use
  Company Number: None

PATIENT
  Age: 71 Year
  Sex: Female

DRUGS (2)
  1. RAMIPRIL [Suspect]
     Active Substance: RAMIPRIL
     Indication: Essential hypertension
     Dosage: UNIT DOSE AND STRENGTH : 10 MG, FREQUENCY TIME : 1 DAY
     Route: 065
     Dates: start: 20221010, end: 20221010
  2. PERINDOPRIL [Concomitant]
     Active Substance: PERINDOPRIL
     Indication: Hypertension
     Dosage: UNIT DOSE AND STRENGTH :5 MG, FREQUENCY TIME : 1 DAY
     Dates: start: 20201022, end: 20221009

REACTIONS (7)
  - Tachycardia [Recovered/Resolved]
  - Malaise [Recovered/Resolved]
  - Vertigo [Recovered/Resolved]
  - Rash pruritic [Recovered/Resolved]
  - Tachypnoea [Recovered/Resolved]
  - Laryngeal oedema [Recovered/Resolved]
  - Headache [Recovered/Resolved]

NARRATIVE: CASE EVENT DATE: 20221010
